FAERS Safety Report 10997506 (Version 5)
Quarter: 2018Q1

REPORT INFORMATION
  Report Type: Spontaneous
  Country: US (occurrence: US)
  Receive Date: 20150408
  Receipt Date: 20180301
  Transmission Date: 20180508
  Serious: No
  Sender: FDA-Public Use
  Company Number: US-PFIZER INC-2015118857

PATIENT
  Age: 65 Year
  Sex: Female

DRUGS (16)
  1. AMOXICILLIN. [Concomitant]
     Active Substance: AMOXICILLIN
     Dosage: 500 MG, 2X/DAY, (TAKE 2 TABLETS TWICE DAILY)
  2. IPRATROPIUM [Concomitant]
     Active Substance: IPRATROPIUM
     Dosage: UNK UNK, 3X/DAY, (SPRAY TWO SPRAYS IN THE AFFECTED NOSTRILS)
     Route: 045
  3. L-METHYL-MC [Concomitant]
     Indication: RASH
  4. L-METHYL-MC [Concomitant]
     Indication: PRURITUS
     Dosage: UNK UNK, 3X/DAY, (TAKE 1 TABLET)
     Route: 048
  5. ASPIRIN. [Concomitant]
     Active Substance: ASPIRIN
     Dosage: 81 MG, DAILY
     Route: 048
  6. TRAMADOL. [Concomitant]
     Active Substance: TRAMADOL
     Indication: PAIN
     Dosage: 50 MG, AS NEEDED [TAKE 1 TO 2 TABLETS BY MOUTH EVERY 8 HOURS AS NEEDED FOR PAIN MAXIMUM DAILY DOSE]
     Route: 048
  7. NEURONTIN [Suspect]
     Active Substance: GABAPENTIN
     Indication: FIBROMYALGIA
     Dosage: UNK
     Route: 048
  8. BENZONATATE. [Concomitant]
     Active Substance: BENZONATATE
     Indication: COUGH
     Dosage: 100 MG, AS NEEDED [TAKE 1 CAPSULE BY MOUTH 3 (THREE) TIMES DAILY AS NEEDED]
     Route: 048
  9. CITALOPRAM [Concomitant]
     Active Substance: CITALOPRAM HYDROBROMIDE
     Dosage: 20 MG, DAILY
     Route: 048
  10. LATANOPROST. [Concomitant]
     Active Substance: LATANOPROST
     Dosage: 2 GTT, 1X/DAY [1 DROP INTO BOTH EYES AT BEDTIME]
     Route: 047
  11. CLOBETASOL [Concomitant]
     Active Substance: CLOBETASOL
     Dosage: UNK UNK, AS NEEDED [APPLY TOPICALLY 2 (TWO) TIMES DAILY. SPARINGLY PRN AS DIRECTED]
     Route: 061
  12. LEVOTHYROXINE. [Concomitant]
     Active Substance: LEVOTHYROXINE
     Dosage: 100 UG, 1X/DAY
     Route: 048
  13. OMEPRAZOLE. [Concomitant]
     Active Substance: OMEPRAZOLE
     Dosage: 20 MG, 3X/DAY
     Route: 048
  14. VOLTAREN [Concomitant]
     Active Substance: DICLOFENAC SODIUM
     Dosage: 1 G, DAILY
     Route: 061
  15. LEVOCETIRIZINE [Concomitant]
     Active Substance: LEVOCETIRIZINE
     Dosage: 5 MG, 1X/DAY, (TAKE 1 TABLET BY MOUTH EVERY EVENING)
     Route: 048
  16. PREGABALIN. [Concomitant]
     Active Substance: PREGABALIN
     Dosage: 100 MG, UNK
     Route: 048

REACTIONS (3)
  - Dry mouth [Unknown]
  - Drug hypersensitivity [Unknown]
  - Product use in unapproved indication [Unknown]
